FAERS Safety Report 4777132-1 (Version None)
Quarter: 2005Q3

REPORT INFORMATION
  Report Type: 
  Country: None (occurrence: None)
  Receive Date: 20050922
  Receipt Date: 20050922
  Transmission Date: 20060218
  Serious: Yes (Disabling, Other)
  Sender: FDA-Public Use
  Company Number: None

PATIENT
  Age: 3 Year
  Sex: Male
  Weight: 14.5151 kg

DRUGS (1)
  1. PULMICORT [Suspect]
     Indication: ASTHMA
     Dosage: .5 MG/ML    1-2 TIMES PER DAY   OTHER
     Route: 050
     Dates: start: 20021201, end: 20031231

REACTIONS (12)
  - ABNORMAL BEHAVIOUR [None]
  - AGGRESSION [None]
  - ANGER [None]
  - DEVELOPMENTAL DELAY [None]
  - HALLUCINATION [None]
  - PHYSICAL ASSAULT [None]
  - PSYCHOTIC DISORDER [None]
  - REGRESSIVE BEHAVIOUR [None]
  - SELF INJURIOUS BEHAVIOUR [None]
  - SLEEP TERROR [None]
  - SUICIDAL IDEATION [None]
  - THINKING ABNORMAL [None]
